FAERS Safety Report 8816495 (Version 2)
Quarter: 2013Q1

REPORT INFORMATION
  Report Type: Spontaneous
  Country: FR (occurrence: None)
  Receive Date: 20120927
  Receipt Date: 20121015
  Transmission Date: 20140127
  Serious: Yes (Hospitalization)
  Sender: FDA-Public Use
  Company Number: DSA_59802_2012

PATIENT
  Age: 38 Year
  Sex: Female

DRUGS (5)
  1. FLAGYL [Suspect]
     Indication: VAGINAL INFECTION
     Route: 048
     Dates: start: 20120825, end: 20120825
  2. SPECIANFOLDINE [Concomitant]
  3. DECAPEPTYL /00486501/ [Concomitant]
  4. DOLIPRANE [Concomitant]
  5. LAMICTAL [Concomitant]

REACTIONS (1)
  - Grand mal convulsion [None]
